APPROVED DRUG PRODUCT: PIRFENIDONE
Active Ingredient: PIRFENIDONE
Strength: 267MG
Dosage Form/Route: CAPSULE;ORAL
Application: A212404 | Product #001
Applicant: CHARTWELL RX SCIENCES LLC
Approved: Aug 28, 2023 | RLD: No | RS: No | Type: DISCN